FAERS Safety Report 19488402 (Version 15)
Quarter: 2023Q2

REPORT INFORMATION
  Report Type: Report from Study
  Country: BR (occurrence: None)
  Receive Date: 20210702
  Receipt Date: 20230522
  Transmission Date: 20230721
  Serious: Yes (Hospitalization)
  Sender: FDA-Public Use
  Company Number: BR-EISAI MEDICAL RESEARCH-EC-2021-095483

PATIENT
  Age: 50 Year
  Sex: Female
  Weight: 53 kg

DRUGS (12)
  1. LENVATINIB [Suspect]
     Active Substance: LENVATINIB
     Indication: Endometrial cancer
     Dosage: STARTING DOSE AT 20 MILLIGRAM (FLUCTUATED DOSAGE)
     Route: 048
     Dates: start: 20191212, end: 20210413
  2. LENVATINIB [Suspect]
     Active Substance: LENVATINIB
     Route: 048
     Dates: start: 20210415, end: 20210616
  3. PEMBROLIZUMAB [Suspect]
     Active Substance: PEMBROLIZUMAB
     Indication: Endometrial cancer
     Route: 041
     Dates: start: 20191212, end: 20210326
  4. PEMBROLIZUMAB [Suspect]
     Active Substance: PEMBROLIZUMAB
     Route: 041
     Dates: start: 20210415, end: 20210415
  5. PEMBROLIZUMAB [Suspect]
     Active Substance: PEMBROLIZUMAB
     Route: 041
     Dates: start: 20210506, end: 20210617
  6. HYDROCHLOROTHIAZIDE [Concomitant]
     Active Substance: HYDROCHLOROTHIAZIDE
     Dates: start: 20200117, end: 20210625
  7. DIPYRONE [Concomitant]
     Active Substance: DIPYRONE
     Dates: start: 20210413, end: 20210625
  8. DIPYRONE [Concomitant]
     Active Substance: DIPYRONE
     Dates: start: 20210413, end: 20210625
  9. LOSARTAN [Concomitant]
     Active Substance: LOSARTAN
     Dates: start: 20200910, end: 20210625
  10. LEVOTHYROXINE SODIUM [Concomitant]
     Active Substance: LEVOTHYROXINE SODIUM
     Dates: start: 20200910, end: 20210625
  11. ATENOLOL [Concomitant]
     Active Substance: ATENOLOL
     Dates: start: 20201015, end: 20210625
  12. OMEPRAZOLE [Concomitant]
     Active Substance: OMEPRAZOLE
     Dates: start: 20210413, end: 20210625

REACTIONS (1)
  - Gastritis [Recovered/Resolved]

NARRATIVE: CASE EVENT DATE: 20210505
